FAERS Safety Report 4492067-X (Version None)
Quarter: 2004Q4

REPORT INFORMATION
  Report Type: 
  Country: None (occurrence: None)
  Receive Date: 20041029
  Receipt Date: 20041018
  Transmission Date: 20050328
  Serious: Yes (Hospitalization)
  Sender: FDA-Public Use
  Company Number: 2004-119008-NL

PATIENT
  Age: 67 Year
  Sex: Female

DRUGS (1)
  1. MIRTAZAPINE [Suspect]
     Indication: ANXIETY
     Dosage: 30 MG QD
     Dates: end: 20040704

REACTIONS (5)
  - LOSS OF CONSCIOUSNESS [None]
  - PULSE ABSENT [None]
  - QRS AXIS ABNORMAL [None]
  - SYNCOPE [None]
  - WHITE BLOOD CELL COUNT DECREASED [None]
